FAERS Safety Report 16193974 (Version 10)
Quarter: 2020Q3

REPORT INFORMATION
  Report Type: Report from Study
  Country: FR (occurrence: FR)
  Receive Date: 20190413
  Receipt Date: 20200817
  Transmission Date: 20201102
  Serious: Yes (Death, Other)
  Sender: FDA-Public Use
  Company Number: PHHY2019FR041257

PATIENT
  Age: 67 Year
  Sex: Male
  Weight: 84 kg

DRUGS (1)
  1. VOTRIENT [Suspect]
     Active Substance: PAZOPANIB HYDROCHLORIDE
     Indication: RENAL CANCER METASTATIC
     Dosage: UNK MG, QD
     Route: 048
     Dates: start: 20181221, end: 20190217

REACTIONS (12)
  - Abdominal pain upper [Recovered/Resolved]
  - Alanine aminotransferase increased [Unknown]
  - Constipation [Recovered/Resolved]
  - Renal cancer metastatic [Fatal]
  - Malignant neoplasm progression [Fatal]
  - Aspartate aminotransferase increased [Unknown]
  - Cell death [Recovered/Resolved]
  - Inflammation [Fatal]
  - Pneumothorax [Fatal]
  - Headache [Recovered/Resolved]
  - Cholestasis [Recovered/Resolved]
  - Diarrhoea [Recovered/Resolved]

NARRATIVE: CASE EVENT DATE: 201812
